FAERS Safety Report 5417866-9 (Version None)
Quarter: 2007Q3

REPORT INFORMATION
  Report Type: 
  Country: None (occurrence: None)
  Receive Date: 20070817
  Receipt Date: 20070807
  Transmission Date: 20080115
  Serious: Yes (Other)
  Sender: FDA-Public Use
  Company Number: US-JNJFOC-20070801919

PATIENT
  Age: 16 Year
  Sex: Female
  Weight: 51.71 kg

DRUGS (8)
  1. INVEGA [Suspect]
     Indication: ASPERGER'S DISORDER
     Route: 048
  2. INVEGA [Suspect]
     Indication: PSYCHOTIC DISORDER
     Route: 048
  3. INVEGA [Suspect]
     Indication: MENTAL RETARDATION SEVERITY UNSPECIFIED
     Route: 048
  4. INVEGA [Suspect]
     Indication: AUTISM SPECTRUM DISORDER
     Route: 048
  5. CITALOPRAM [Concomitant]
     Indication: ASPERGER'S DISORDER
     Route: 048
  6. CITALOPRAM [Concomitant]
     Indication: AUTISM SPECTRUM DISORDER
     Route: 048
  7. ADDERALL 10 [Concomitant]
     Indication: ASPERGER'S DISORDER
     Route: 048
  8. ADDERALL 10 [Concomitant]
     Indication: AUTISM SPECTRUM DISORDER
     Route: 048

REACTIONS (4)
  - CONFUSIONAL STATE [None]
  - HEADACHE [None]
  - NEUROLEPTIC MALIGNANT SYNDROME [None]
  - PALPITATIONS [None]
